FAERS Safety Report 8257997-1 (Version None)
Quarter: 2012Q1

REPORT INFORMATION
  Report Type: 
  Country: None (occurrence: None)
  Receive Date: 20111211
  Receipt Date: 20110825
  Transmission Date: 20120608
  Serious: No
  Sender: FDA-Public Use
  Company Number: 201108038

PATIENT
  Sex: Male

DRUGS (3)
  1. ANESTHETICS [Concomitant]
  2. LOCAL (ANESTHETICS, LOCAL) [Concomitant]
  3. XIAFLEX (CLOSTRIDIAL COLLAGENASE) [Suspect]
     Indication: DUPUYTREN'S CONTRACTURE
     Dosage: 0.29, 1 IN 1 D, INTRALESIONAL
     Route: 026
     Dates: start: 20110810, end: 20110810

REACTIONS (4)
  - THROMBOPHLEBITIS SUPERFICIAL [None]
  - INCORRECT DOSE ADMINISTERED [None]
  - INJURY [None]
  - PHLEBITIS [None]
